FAERS Safety Report 10571742 (Version 2)
Quarter: 2015Q1

REPORT INFORMATION
  Report Type: Spontaneous
  Country: US (occurrence: US)
  Receive Date: 20141107
  Receipt Date: 20150120
  Transmission Date: 20150720
  Serious: No
  Sender: FDA-Public Use
  Company Number: US-TEVA-517499USA

PATIENT
  Age: 48 Year
  Sex: Male

DRUGS (1)
  1. COPAXONE [Suspect]
     Active Substance: GLATIRAMER ACETATE
     Indication: MULTIPLE SCLEROSIS
     Route: 058
     Dates: start: 201403

REACTIONS (4)
  - Rash erythematous [Unknown]
  - Rash [Unknown]
  - Rash pruritic [Unknown]
  - Rash papular [Unknown]

NARRATIVE: CASE EVENT DATE: 20141008
